FAERS Safety Report 10223357 (Version 1)
Quarter: 2014Q2

REPORT INFORMATION
  Report Type: Spontaneous
  Country: US (occurrence: US)
  Receive Date: 20140609
  Receipt Date: 20140609
  Transmission Date: 20141212
  Serious: No
  Sender: FDA-Public Use
  Company Number: US-ASTRAZENECA-2014SE36799

PATIENT
  Sex: Male

DRUGS (1)
  1. CRESTOR [Suspect]
     Route: 048
     Dates: start: 2004

REACTIONS (4)
  - Creatinine urine [Unknown]
  - Blood cholesterol abnormal [Unknown]
  - Microalbuminuria [Unknown]
  - Protein urine present [Unknown]
